APPROVED DRUG PRODUCT: OXYCODONE HYDROCHLORIDE
Active Ingredient: OXYCODONE HYDROCHLORIDE
Strength: 100MG/5ML
Dosage Form/Route: SOLUTION;ORAL
Application: A211749 | Product #001 | TE Code: AA
Applicant: ALKEM LABORATORIES LTD
Approved: Feb 4, 2019 | RLD: No | RS: No | Type: RX